FAERS Safety Report 6434057-3 (Version None)
Quarter: 2009Q4

REPORT INFORMATION
  Report Type: 
  Country: None (occurrence: None)
  Receive Date: 20091110
  Receipt Date: 20091029
  Transmission Date: 20100525
  Serious: Yes (Hospitalization)
  Sender: FDA-Public Use
  Company Number: AU-CELGENEUS-008-20785-09100226

PATIENT
  Sex: Male
  Weight: 96 kg

DRUGS (3)
  1. REVLIMID [Suspect]
     Indication: MULTIPLE MYELOMA
     Route: 048
     Dates: start: 20080812, end: 20090804
  2. THALIDOMIDE [Concomitant]
     Indication: MULTIPLE MYELOMA
     Route: 048
     Dates: start: 20090804
  3. DEXAMETHASONE [Concomitant]
     Indication: MULTIPLE MYELOMA
     Route: 048

REACTIONS (1)
  - MULTIPLE MYELOMA [None]
